FAERS Safety Report 5125753-9 (Version None)
Quarter: 2006Q4

REPORT INFORMATION
  Report Type: 
  Country: None (occurrence: None)
  Receive Date: 20061012
  Receipt Date: 20060929
  Transmission Date: 20070319
  Serious: Yes (Other)
  Sender: FDA-Public Use
  Company Number: GBWYE079429SEP06

PATIENT
  Age: 55 Year

DRUGS (3)
  1. ENBREL [Suspect]
     Indication: RHEUMATOID ARTHRITIS
     Dosage: 25MG, FREQUENCY UMKNOWN
     Route: 058
     Dates: start: 20060406
  2. METHOTREXATE [Concomitant]
     Indication: RHEUMATOID ARTHRITIS
     Dosage: 10MG, FREQUENCY UNKNOWN
     Route: 048
     Dates: start: 19970301
  3. DICLOFENAC [Concomitant]
     Dosage: UNKNOWN
     Dates: start: 19960901

REACTIONS (2)
  - BRONCHIECTASIS [None]
  - EMPHYSEMA [None]
